FAERS Safety Report 24530742 (Version 2)
Quarter: 2025Q3

REPORT INFORMATION
  Report Type: Spontaneous
  Country: JP (occurrence: JP)
  Receive Date: 20241021
  Receipt Date: 20250711
  Transmission Date: 20251021
  Serious: Yes (Hospitalization, Other)
  Sender: LUNDBECK
  Company Number: JP-SA-2024SA296162

PATIENT
  Age: 2 Year
  Sex: Male

DRUGS (1)
  1. SABRIL [Suspect]
     Active Substance: VIGABATRIN
     Indication: Product used for unknown indication
     Route: 048

REACTIONS (2)
  - Brain operation [Unknown]
  - Retinogram abnormal [Not Recovered/Not Resolved]

NARRATIVE: CASE EVENT DATE: 20240101
